FAERS Safety Report 8995833 (Version 1)
Quarter: 2013Q1

REPORT INFORMATION
  Report Type: Spontaneous
  Country: US (occurrence: US)
  Receive Date: 20130103
  Receipt Date: 20130103
  Transmission Date: 20140127
  Serious: Yes (Death)
  Sender: FDA-Public Use
  Company Number: PHEH2012US025589

PATIENT
  Age: 70 Year
  Sex: Female

DRUGS (15)
  1. TOBI [Suspect]
     Indication: BRONCHIAL CARCINOMA
     Dosage: 1 DF (300MG), BID 28 DAYS ON AND 28 DAYS OFF
     Dates: start: 20110819, end: 20121120
  2. PREDNISONE [Concomitant]
  3. NEURONTIN [Concomitant]
  4. PRAVACHOL [Concomitant]
  5. ADVAIR [Concomitant]
  6. AVELOX [Concomitant]
  7. MEPHYTON [Concomitant]
  8. TOPROL XL [Concomitant]
  9. SPIRIVA [Concomitant]
  10. FOLIC ACID [Concomitant]
  11. VITAMIN B 12 [Concomitant]
  12. ASPIRIN [Concomitant]
  13. CALCIUM [Concomitant]
  14. MULTI-VIT [Concomitant]
  15. LOVAZA [Concomitant]

REACTIONS (1)
  - Neoplasm malignant [Fatal]
